FAERS Safety Report 14317041 (Version 1)
Quarter: 2017Q4

REPORT INFORMATION
  Report Type: Report from Study
  Country: GB (occurrence: GB)
  Receive Date: 20171222
  Receipt Date: 20171222
  Transmission Date: 20180321
  Serious: Yes (Other)
  Sender: FDA-Public Use
  Company Number: PHHY2017GB188968

PATIENT
  Sex: Female

DRUGS (1)
  1. COSENTYX [Suspect]
     Active Substance: SECUKINUMAB
     Indication: ANKYLOSING SPONDYLITIS
     Dosage: 150 MG, QW (FOR WEEK 0, 1, 2, 3 AND THEN MONTHLY FROM WEEK FOUR)
     Route: 058
     Dates: start: 20171204

REACTIONS (2)
  - Lower respiratory tract infection [Unknown]
  - Hyperhidrosis [Unknown]
